FAERS Safety Report 6054932-1 (Version None)
Quarter: 2009Q1

REPORT INFORMATION
  Report Type: 
  Country: None (occurrence: None)
  Receive Date: 20090128
  Receipt Date: 20090119
  Transmission Date: 20090719
  Serious: Yes (Other)
  Sender: FDA-Public Use
  Company Number: PHHY2009BR02285

PATIENT
  Age: 82 Year
  Sex: Male

DRUGS (6)
  1. FORADIL [Suspect]
     Indication: ASTHMA
     Dosage: 12 UG, 2 INHALATIONS DAILY
  2. FORADIL [Suspect]
     Indication: BRONCHITIS
  3. PROPOLIS [Concomitant]
     Indication: ASTHMA
     Dosage: UNK
  4. BEROTEC [Concomitant]
     Dosage: UNK
  5. SENNA [Concomitant]
     Dosage: UNK
  6. HERBAL PREPARATION [Concomitant]
     Dosage: UNK

REACTIONS (10)
  - CONFUSIONAL STATE [None]
  - CONTUSION [None]
  - DYSPNOEA [None]
  - FOOD INTOLERANCE [None]
  - INCORRECT ROUTE OF DRUG ADMINISTRATION [None]
  - INTENTIONAL OVERDOSE [None]
  - MEDICATION ERROR [None]
  - MEMORY IMPAIRMENT [None]
  - PRURITUS [None]
  - TREATMENT NONCOMPLIANCE [None]
